FAERS Safety Report 17084323 (Version 1)
Quarter: 2019Q4

REPORT INFORMATION
  Report Type: Spontaneous
  Country: CA (occurrence: CA)
  Receive Date: 20191127
  Receipt Date: 20191127
  Transmission Date: 20200122
  Serious: Yes (Other)
  Sender: FDA-Public Use
  Company Number: CA-TEVA-2019-CA-1141289

PATIENT
  Age: 53 Year
  Sex: Female

DRUGS (3)
  1. METHOTREXATE. [Suspect]
     Active Substance: METHOTREXATE
     Indication: PRODUCT USED FOR UNKNOWN INDICATION
     Route: 065
  2. HYDROXYCHLOROQUINE [Concomitant]
     Active Substance: HYDROXYCHLOROQUINE
  3. SULFASALAZINE. [Concomitant]
     Active Substance: SULFASALAZINE

REACTIONS (3)
  - Chronic kidney disease [Unknown]
  - Drug intolerance [Unknown]
  - Therapeutic product effect incomplete [Unknown]
